APPROVED DRUG PRODUCT: CIS-MDP
Active Ingredient: TECHNETIUM TC-99M MEDRONATE KIT
Strength: N/A
Dosage Form/Route: INJECTABLE;INJECTION
Application: N018124 | Product #001 | TE Code: AP
Applicant: SUN PHARMACEUTICAL INDUSTRIES INC
Approved: Approved Prior to Jan 1, 1982 | RLD: No | RS: No | Type: RX